FAERS Safety Report 8424080-1 (Version None)
Quarter: 2012Q2

REPORT INFORMATION
  Report Type: 
  Country: None (occurrence: None)
  Receive Date: 20120608
  Receipt Date: 20110606
  Transmission Date: 20120825
  Serious: No
  Sender: FDA-Public Use
  Company Number: US-ASTRAZENECA-2011SE34672

PATIENT
  Age: 43 Year
  Sex: Female
  Weight: 72.6 kg

DRUGS (2)
  1. ADVAIR DISKUS 100/50 [Concomitant]
  2. PULMICORT FLEXHALER [Suspect]
     Indication: ASTHMA
     Route: 055
     Dates: start: 20110501

REACTIONS (2)
  - FAECES DISCOLOURED [None]
  - INAPPROPRIATE SCHEDULE OF DRUG ADMINISTRATION [None]
